FAERS Safety Report 6128635-9 (Version None)
Quarter: 2009Q1

REPORT INFORMATION
  Report Type: 
  Country: None (occurrence: None)
  Receive Date: 20090323
  Receipt Date: 20090309
  Transmission Date: 20090719
  Serious: Yes (Other)
  Sender: FDA-Public Use
  Company Number: DE-B.I. PHARMACEUTICALS,INC./RIDGEFIELD-2009-DE-02139DE

PATIENT
  Sex: Male
  Weight: 15 kg

DRUGS (1)
  1. SIFROL 0,18 MG [Suspect]
     Dosage: .09MG
     Route: 048

REACTIONS (1)
  - MEDICATION ERROR [None]
